FAERS Safety Report 25134113 (Version 1)
Quarter: 2025Q1

REPORT INFORMATION
  Report Type: Spontaneous
  Country: US (occurrence: US)
  Receive Date: 20250328
  Receipt Date: 20250328
  Transmission Date: 20250409
  Serious: Yes (Other)
  Sender: ABBVIE
  Company Number: US-ABBVIE-6198708

PATIENT

DRUGS (2)
  1. SKYRIZI [Suspect]
     Active Substance: RISANKIZUMAB-RZAA
     Indication: Product used for unknown indication
     Route: 042
  2. PREDNISONE [Concomitant]
     Active Substance: PREDNISONE
     Indication: Product used for unknown indication
     Dates: start: 2024

REACTIONS (6)
  - Autoimmune pancreatitis [Unknown]
  - Cushingoid [Unknown]
  - Muscular weakness [Unknown]
  - Paraesthesia [Unknown]
  - Fatigue [Unknown]
  - Colitis ulcerative [Unknown]
